FAERS Safety Report 13496997 (Version 1)
Quarter: 2017Q2

REPORT INFORMATION
  Report Type: Spontaneous
  Country: CO (occurrence: CO)
  Receive Date: 20170428
  Receipt Date: 20170428
  Transmission Date: 20170830
  Serious: Yes (Hospitalization)
  Sender: FDA-Public Use
  Company Number: CO-AMGEN-COLSP2016143134

PATIENT
  Sex: Male

DRUGS (4)
  1. THIAMINE. [Concomitant]
     Active Substance: THIAMINE
     Dosage: 1 DF, DAILY
     Route: 064
     Dates: start: 201606, end: 201702
  2. VITAMIN C [Concomitant]
     Active Substance: ASCORBIC ACID
     Dosage: 1 DF, DAILY
     Route: 064
     Dates: start: 201606, end: 201702
  3. FOLIC ACID. [Concomitant]
     Active Substance: FOLIC ACID
     Dosage: 1 DF, DAILY
     Route: 064
     Dates: start: 201606, end: 201702
  4. ENBREL [Suspect]
     Active Substance: ETANERCEPT
     Indication: EXPOSURE DURING PREGNANCY
     Dosage: 50 MG, WEEKLY
     Route: 064
     Dates: start: 2008

REACTIONS (2)
  - Maternal exposure during pregnancy [Unknown]
  - Meconium aspiration syndrome [Recovered/Resolved]

NARRATIVE: CASE EVENT DATE: 2016
